FAERS Safety Report 6639518-X (Version None)
Quarter: 2010Q1

REPORT INFORMATION
  Report Type: 
  Country: None (occurrence: None)
  Receive Date: 20100318
  Receipt Date: 20100303
  Transmission Date: 20100710
  Serious: Yes (Hospitalization, Other)
  Sender: FDA-Public Use
  Company Number: CA-ELI_LILLY_AND_COMPANY-CA201003001402

PATIENT
  Age: 64 Year
  Sex: Female

DRUGS (7)
  1. FORTEO [Suspect]
     Indication: OSTEOPOROSIS
     Dosage: 20 UG, DAILY (1/D)
     Route: 058
     Dates: start: 20091019
  2. WARFARIN SODIUM [Concomitant]
     Dosage: UNK, UNKNOWN
  3. DIGOXIN [Concomitant]
     Dosage: UNK, UNKNOWN
  4. APO-TRIAZIDE [Concomitant]
     Dosage: UNK, UNKNOWN
  5. CALCIUM [Concomitant]
     Dosage: UNK, UNKNOWN
  6. VITAMIN D [Concomitant]
     Dosage: UNK, UNKNOWN
  7. MAGNESIUM [Concomitant]
     Dosage: UNK, UNKNOWN

REACTIONS (2)
  - FALL [None]
  - HIP FRACTURE [None]
